FAERS Safety Report 7062686-5 (Version None)
Quarter: 2010Q4

REPORT INFORMATION
  Report Type: 
  Country: None (occurrence: None)
  Receive Date: 20101026
  Receipt Date: 20091221
  Transmission Date: 20110411
  Serious: No
  Sender: FDA-Public Use
  Company Number: US-PFIZER INC-2009314877

PATIENT
  Sex: Female
  Weight: 81.6 kg

DRUGS (3)
  1. LIPITOR [Suspect]
     Indication: BLOOD CHOLESTEROL INCREASED
     Dosage: 20 MG, 1X/DAY
     Dates: start: 20090101, end: 20091201
  2. AVAPRO [Concomitant]
     Indication: HYPERTENSION
     Dosage: 300 MG, UNK
  3. MAXZIDE [Concomitant]
     Indication: BLOOD PRESSURE
     Dosage: [HYDROCHLOROTHIAZIDE 75MG]/[TRIAMTERENE 50MG]

REACTIONS (5)
  - ANXIETY [None]
  - DEPRESSION [None]
  - FATIGUE [None]
  - PRURITUS [None]
  - TRICHORRHEXIS [None]
